FAERS Safety Report 14307958 (Version 3)
Quarter: 2018Q4

REPORT INFORMATION
  Report Type: Spontaneous
  Country: US (occurrence: US)
  Receive Date: 20171220
  Receipt Date: 20181120
  Transmission Date: 20190204
  Serious: No
  Sender: FDA-Public Use
  Company Number: US-PFIZER INC-2017538041

PATIENT
  Sex: Female

DRUGS (5)
  1. DOCEFREZ [Suspect]
     Active Substance: DOCETAXEL ANHYDROUS
     Dosage: 165 MG, UNK
     Dates: start: 20131114, end: 20140227
  2. CYTOXAN [Concomitant]
     Active Substance: CYCLOPHOSPHAMIDE
  3. DOCETAXEL. [Suspect]
     Active Substance: DOCETAXEL
     Dosage: 165 MG, UNK
     Dates: start: 20131114, end: 20140227
  4. TAXOTERE [Suspect]
     Active Substance: DOCETAXEL
     Dosage: 165 MG, UNK
     Dates: start: 20131114, end: 20140227
  5. DOCETAXEL. [Suspect]
     Active Substance: DOCETAXEL
     Dosage: 165 MG, UNK
     Dates: start: 20131114, end: 20140227

REACTIONS (1)
  - Alopecia [Not Recovered/Not Resolved]
